FAERS Safety Report 13049437 (Version 1)
Quarter: 2016Q4

REPORT INFORMATION
  Report Type: Spontaneous
  Country: GB (occurrence: GB)
  Receive Date: 20161221
  Receipt Date: 20161221
  Transmission Date: 20170207
  Serious: Yes (Other)
  Sender: FDA-Public Use
  Company Number: GB-ACCORD-046595

PATIENT
  Age: 27 Year
  Sex: Female

DRUGS (3)
  1. MIRANOVA BAYER [Suspect]
     Active Substance: ETHINYL ESTRADIOL\LEVONORGESTREL
     Indication: CONTRACEPTION
     Route: 048
     Dates: end: 20160809
  2. MICROGYNON [Suspect]
     Active Substance: ETHINYL ESTRADIOL\LEVONORGESTREL ACETATE
     Indication: CONTRACEPTION
     Dosage: 20 MG ETHINYLESTRADIOL PLUS 100 MG LEVONORGESTREL
     Route: 048
     Dates: start: 20160810
  3. TOPIRAMATE. [Suspect]
     Active Substance: TOPIRAMATE
     Indication: EPILEPSY
     Dosage: 75 MG DAILY FOR OVER A YEAR

REACTIONS (2)
  - Pregnancy on oral contraceptive [Unknown]
  - Product substitution issue [Unknown]

NARRATIVE: CASE EVENT DATE: 20161003
